FAERS Safety Report 7563446-9 (Version None)
Quarter: 2011Q2

REPORT INFORMATION
  Report Type: 
  Country: None (occurrence: None)
  Receive Date: 20110621
  Receipt Date: 20110621
  Transmission Date: 20111010
  Serious: Yes (Other)
  Sender: FDA-Public Use
  Company Number: None

PATIENT
  Sex: Male
  Weight: 86.637 kg

DRUGS (6)
  1. LEVOTHYROXINE SODIUM [Concomitant]
  2. METOPROLOL TARTRATE [Concomitant]
  3. DEBROX [Concomitant]
  4. AMLODIPINE BESYLATE [Concomitant]
  5. PRADAXA [Suspect]
     Indication: ATRIAL FIBRILLATION
     Dosage: 150MG BID PO
     Route: 048
     Dates: start: 20110527, end: 20110617
  6. METOPROLOL SUCCINATE [Concomitant]

REACTIONS (3)
  - CONSTIPATION [None]
  - RECTAL HAEMORRHAGE [None]
  - HAEMORRHOIDS [None]
